FAERS Safety Report 8394365-6 (Version None)
Quarter: 2012Q1

REPORT INFORMATION
  Report Type: 
  Country: None (occurrence: None)
  Receive Date: 20120323
  Receipt Date: 20111128
  Transmission Date: 20120608
  Serious: Yes (Other)
  Sender: FDA-Public Use
  Company Number: 163-21880-11050585

PATIENT
  Age: 64 Year
  Sex: Female
  Weight: 54.25 kg

DRUGS (14)
  1. DEXAMETHASONE [Concomitant]
  2. ASPIRIN [Concomitant]
  3. NEURONTIN [Concomitant]
  4. COMPAZINE [Concomitant]
  5. ZOFRAN [Concomitant]
  6. MULTIVITAMIN [Concomitant]
  7. PROTONIX [Concomitant]
  8. REVLIMID [Suspect]
     Indication: MYELOMA RECURRENCE
     Dosage: 10 MG, DAILY FOR 21 DAYS, 7 DAYS OFF, PO
     Route: 048
     Dates: start: 20070901
  9. REVLIMID [Suspect]
     Indication: MYELOMA RECURRENCE
     Dosage: 10 MG, DAILY FOR 21 DAYS, 7 DAYS OFF, PO
     Route: 048
     Dates: start: 20080116, end: 20110101
  10. ZOMETA [Concomitant]
  11. CALCIUM + VITAMIN D (LEKOVIT CA) [Concomitant]
  12. KEFLEX [Concomitant]
  13. POTASSIUM CHLORIDE [Concomitant]
  14. FLONASE [Concomitant]

REACTIONS (1)
  - MULTIPLE MYELOMA [None]
